FAERS Safety Report 7929208-5 (Version None)
Quarter: 2011Q4

REPORT INFORMATION
  Report Type: 
  Country: None (occurrence: None)
  Receive Date: 20111120
  Receipt Date: 20111107
  Transmission Date: 20120403
  Serious: Yes (Hospitalization)
  Sender: FDA-Public Use
  Company Number: US-ELI_LILLY_AND_COMPANY-US201108007751

PATIENT
  Sex: Female

DRUGS (1)
  1. FORTEO [Suspect]
     Indication: OSTEOPOROSIS
     Dosage: 20 UG, QD
     Route: 065
     Dates: start: 20110201

REACTIONS (5)
  - ANAEMIA [None]
  - PNEUMONIA [None]
  - CARDIAC DISORDER [None]
  - URINARY TRACT INFECTION [None]
  - OEDEMA PERIPHERAL [None]
